FAERS Safety Report 7953081-2 (Version None)
Quarter: 2011Q4

REPORT INFORMATION
  Report Type: 
  Country: None (occurrence: None)
  Receive Date: 20111201
  Receipt Date: 20111121
  Transmission Date: 20120403
  Serious: Yes (Other)
  Sender: FDA-Public Use
  Company Number: JP-ASTRAZENECA-2011SE71935

PATIENT
  Sex: Female

DRUGS (2)
  1. ANTIHYPERTENSIVE [Concomitant]
  2. SEROQUEL [Suspect]
     Route: 048

REACTIONS (1)
  - LABILE BLOOD PRESSURE [None]
